FAERS Safety Report 15358462 (Version 3)
Quarter: 2019Q4

REPORT INFORMATION
  Report Type: Report from Study
  Country: ES (occurrence: ES)
  Receive Date: 20180906
  Receipt Date: 20191115
  Transmission Date: 20200122
  Serious: Yes (Death, Hospitalization)
  Sender: FDA-Public Use
  Company Number: ES-PURDUE PHARMA-GBR-2018-0058954

PATIENT
  Age: 72 Year
  Sex: Male

DRUGS (3)
  1. OXYGEN. [Concomitant]
     Active Substance: OXYGEN
     Indication: CHRONIC OBSTRUCTIVE PULMONARY DISEASE
  2. MORPHINE SULFATE. [Suspect]
     Active Substance: MORPHINE SULFATE
     Indication: PRODUCT USED FOR UNKNOWN INDICATION
     Route: 065
  3. OXYGEN. [Concomitant]
     Active Substance: OXYGEN
     Indication: IDIOPATHIC PULMONARY FIBROSIS

REACTIONS (14)
  - Breath sounds abnormal [Fatal]
  - Weight increased [Fatal]
  - Abdominal pain upper [Fatal]
  - Pain [Fatal]
  - Bronchitis [Fatal]
  - Productive cough [Fatal]
  - Dyspnoea [Fatal]
  - Urinary retention [Fatal]
  - Constipation [Fatal]
  - Nasopharyngitis [Fatal]
  - Diarrhoea [Fatal]
  - Nasopharyngitis [Fatal]
  - Cough [Fatal]
  - Pneumonia [Fatal]

NARRATIVE: CASE EVENT DATE: 20161213
